FAERS Safety Report 8457374-4 (Version None)
Quarter: 2012Q2

REPORT INFORMATION
  Report Type: 
  Country: None (occurrence: None)
  Receive Date: 20120621
  Receipt Date: 20120614
  Transmission Date: 20120825
  Serious: No
  Sender: FDA-Public Use
  Company Number: US-PFIZER INC-2012104991

PATIENT
  Sex: Female

DRUGS (2)
  1. IBUPROFEN (ADVIL) [Suspect]
     Indication: HEADACHE
     Dosage: 1 OR 2 (NOT TOGETHER)
     Dates: start: 20120101
  2. IBUPROFEN (ADVIL) [Suspect]
     Dosage: 2 AT ONE TIME EVERY OTHER DAY

REACTIONS (6)
  - CONDITION AGGRAVATED [None]
  - MUSCULOSKELETAL STIFFNESS [None]
  - EPISTAXIS [None]
  - PAIN [None]
  - FEELING ABNORMAL [None]
  - HAEMOPTYSIS [None]
